FAERS Safety Report 8535635-8 (Version None)
Quarter: 2012Q3

REPORT INFORMATION
  Report Type: 
  Country: None (occurrence: None)
  Receive Date: 20120725
  Receipt Date: 20120720
  Transmission Date: 20120928
  Serious: No
  Sender: FDA-Public Use
  Company Number: US-PFIZER INC-2012176176

PATIENT
  Sex: Female

DRUGS (1)
  1. SUTENT [Suspect]
     Indication: NEUROENDOCRINE TUMOUR
     Dosage: 3TABS DAILY

REACTIONS (3)
  - FATIGUE [None]
  - STOMATITIS [None]
  - DIARRHOEA [None]
